FAERS Safety Report 16084921 (Version 1)
Quarter: 2019Q1

REPORT INFORMATION
  Report Type: Report from Study
  Country: TW (occurrence: TW)
  Receive Date: 20190318
  Receipt Date: 20190318
  Transmission Date: 20190418
  Serious: Yes (Hospitalization, Disabling, Other)
  Sender: FDA-Public Use
  Company Number: TW-JNJFOC-20190305381

PATIENT
  Age: 66 Year
  Sex: Male
  Weight: 56 kg

DRUGS (15)
  1. LIPANTHYL SUPRA [Concomitant]
     Active Substance: FENOFIBRATE
     Indication: HYPERLIPIDAEMIA
     Dosage: 160 MG/TAB 1 TAB FOR 28 DAYS
     Route: 048
  2. STILNOX [Concomitant]
     Active Substance: ZOLPIDEM TARTRATE
     Indication: INSOMNIA
     Dosage: 28 DAYS
     Route: 048
  3. TRAJENTA [Concomitant]
     Active Substance: LINAGLIPTIN
     Indication: DIABETES MELLITUS
     Dosage: 5 MG/TAB 1 TAB FOR 28 DAYS
     Route: 048
  4. ETORICOXIB. [Concomitant]
     Active Substance: ETORICOXIB
     Dosage: 1 TAB FOR 7 DAYS
     Route: 048
  5. CORDARONE [Concomitant]
     Active Substance: AMIODARONE HYDROCHLORIDE
     Indication: HYPERTENSION
     Dosage: 200 MG/TAB 0.5 TAB QD FOR 28 DAYS
     Route: 048
  6. LODITON [Concomitant]
     Dosage: 500 MG/TAB 0.5 TAB FOR 56 DAYS
     Route: 048
  7. GLIBENCLAMIDE [Concomitant]
     Active Substance: GLYBURIDE
     Indication: DIABETES MELLITUS
     Dosage: 5 MG/TAB 1 TAB FOR 28 DAYS
     Route: 048
  8. ACETAMINOPHEN. [Concomitant]
     Active Substance: ACETAMINOPHEN
     Dosage: 1 TAB FOR 7 DAYS
     Route: 048
  9. CEPHALEXIN MONOHYDRATE. [Concomitant]
     Active Substance: CEPHALEXIN MONOHYDRATE
     Dosage: 2 CAP FOR 7 DAYS
     Route: 048
  10. ATEOL [Concomitant]
     Indication: HYPERTENSION
     Dosage: FOR 28 DAYS
     Route: 048
  11. ALPRALINE [Concomitant]
     Active Substance: ALPRAZOLAM
     Indication: DEPRESSION
     Dosage: 0.5 MG/TAB 1/2 TAB FOR 28 DAYS
     Route: 048
  12. STELARA [Suspect]
     Active Substance: USTEKINUMAB
     Indication: PSORIASIS
     Route: 058
     Dates: end: 20190201
  13. COZAAR [Concomitant]
     Active Substance: LOSARTAN POTASSIUM
     Indication: HYPERTENSION
     Dosage: FOR 28 DAYS
     Route: 048
  14. PENTOXIFYLLINE. [Concomitant]
     Active Substance: PENTOXIFYLLINE
     Indication: PERIPHERAL VASCULAR DISORDER
     Dosage: 400 MG/TAB 1 TAB FOR 28 DAYS
     Route: 048
  15. STELARA [Suspect]
     Active Substance: USTEKINUMAB
     Indication: PSORIASIS
     Route: 058
     Dates: start: 20181005

REACTIONS (5)
  - Eye excision [Unknown]
  - Diabetes mellitus inadequate control [Unknown]
  - Hand fracture [Unknown]
  - Ischaemic stroke [Unknown]
  - Limb crushing injury [Not Recovered/Not Resolved]

NARRATIVE: CASE EVENT DATE: 201902
